FAERS Safety Report 9467449 (Version 3)
Quarter: 2013Q4

REPORT INFORMATION
  Report Type: Report from Study
  Country: SD (occurrence: SD)
  Receive Date: 20130821
  Receipt Date: 20131008
  Transmission Date: 20140711
  Serious: Yes (Death)
  Sender: FDA-Public Use
  Company Number: PHHY2012SD023753

PATIENT
  Sex: Male

DRUGS (3)
  1. GLIVEC [Suspect]
     Indication: GASTROINTESTINAL STROMAL TUMOUR
     Dosage: 400 MG, DAILY
     Dates: start: 20090305
  2. GLIVEC [Suspect]
     Dosage: 800 MG, DAILY
     Dates: start: 20111013, end: 201202
  3. SUTENT [Suspect]
     Dosage: 50 MG, UNK

REACTIONS (3)
  - General physical health deterioration [Fatal]
  - Abdominal pain upper [Unknown]
  - Drug ineffective [Unknown]
